FAERS Safety Report 7516264-1 (Version None)
Quarter: 2011Q2

REPORT INFORMATION
  Report Type: 
  Country: None (occurrence: None)
  Receive Date: 20110512
  Receipt Date: 20110315
  Transmission Date: 20111010
  Serious: Yes (Hospitalization)
  Sender: FDA-Public Use
  Company Number: PC0000731/IV0000572

PATIENT
  Age: 74 Year
  Sex: Male
  Weight: 110.2241 kg

DRUGS (15)
  1. LEVOTHYROXINE SODIUM [Concomitant]
  2. MULTI-VITE [Concomitant]
  3. NIASPAN [Concomitant]
  4. VIT D3 [Concomitant]
  5. MIRALAX [Concomitant]
  6. SIMVASTATIN [Concomitant]
  7. AMITRIPTYLINE HYDROCHLORIDE [Concomitant]
  8. FLUDEOXYGLUCOSE F 18 [Suspect]
     Indication: METASTATIC RENAL CELL CARCINOMA
     Dosage: 15 MCI IN 2ML IV 040
     Route: 042
     Dates: start: 20110314
  9. TRICOR [Concomitant]
  10. FUROSEMIDE [Concomitant]
  11. LD ASA [Concomitant]
  12. PERCOSET [Concomitant]
  13. CALAN [Concomitant]
  14. INSULIN [Concomitant]
  15. ERGOTAMINE-CAFFEINE [Concomitant]

REACTIONS (8)
  - POST PROCEDURAL COMPLICATION [None]
  - PNEUMONITIS [None]
  - DYSPNOEA EXERTIONAL [None]
  - LUNG INFILTRATION [None]
  - BLOOD PRESSURE SYSTOLIC INCREASED [None]
  - BUNDLE BRANCH BLOCK LEFT [None]
  - BUNDLE BRANCH BLOCK RIGHT [None]
  - PLEURITIC PAIN [None]
